FAERS Safety Report 17528904 (Version 1)
Quarter: 2020Q1

REPORT INFORMATION
  Report Type: Spontaneous
  Country: US (occurrence: US)
  Receive Date: 20200311
  Receipt Date: 20200311
  Transmission Date: 20200409
  Serious: Yes (Hospitalization, Disabling)
  Sender: FDA-Public Use
  Company Number: US-BAUSCH-BL-2020-006450

PATIENT
  Sex: Female
  Weight: 76.73 kg

DRUGS (2)
  1. ATIVAN [Suspect]
     Active Substance: LORAZEPAM
     Indication: ANXIETY
     Route: 065
     Dates: start: 201407
  2. ATIVAN [Suspect]
     Active Substance: LORAZEPAM
     Route: 065
     Dates: start: 201607

REACTIONS (11)
  - Balance disorder [Not Recovered/Not Resolved]
  - Depression [Not Recovered/Not Resolved]
  - Anxiety [Not Recovered/Not Resolved]
  - Impaired driving ability [Unknown]
  - Blood pressure fluctuation [Not Recovered/Not Resolved]
  - Drug dependence [Not Recovered/Not Resolved]
  - Gait inability [Unknown]
  - Menstruation irregular [Not Recovered/Not Resolved]
  - Heart rate irregular [Not Recovered/Not Resolved]
  - Dizziness [Not Recovered/Not Resolved]
  - Impaired work ability [Unknown]

NARRATIVE: CASE EVENT DATE: 2015
